FAERS Safety Report 17541641 (Version 1)
Quarter: 2020Q1

REPORT INFORMATION
  Report Type: Spontaneous
  Country: US (occurrence: US)
  Receive Date: 20200313
  Receipt Date: 20200313
  Transmission Date: 20200409
  Serious: No
  Sender: FDA-Public Use
  Company Number: US-JNJFOC-20200317971

PATIENT
  Age: 68 Year
  Sex: Female
  Weight: 61.74 kg

DRUGS (1)
  1. REMICADE [Suspect]
     Active Substance: INFLIXIMAB
     Indication: RHEUMATOID ARTHRITIS
     Route: 042
     Dates: start: 20200227, end: 20200227

REACTIONS (1)
  - Intercepted product administration error [Recovered/Resolved]

NARRATIVE: CASE EVENT DATE: 20200227
